FAERS Safety Report 7089078-7 (Version None)
Quarter: 2010Q4

REPORT INFORMATION
  Report Type: 
  Country: None (occurrence: None)
  Receive Date: 20101108
  Receipt Date: 20101101
  Transmission Date: 20110411
  Serious: Yes (Other)
  Sender: FDA-Public Use
  Company Number: B0682971A

PATIENT
  Age: 76 Year
  Sex: Male

DRUGS (1)
  1. CEFTAZIDIME SODIUM [Suspect]
     Indication: PROSTATITIS
     Route: 042

REACTIONS (4)
  - CONDITION AGGRAVATED [None]
  - GASTROINTESTINAL OEDEMA [None]
  - PROSTATITIS [None]
  - PSEUDOMEMBRANOUS COLITIS [None]
